FAERS Safety Report 9418618 (Version 2)
Quarter: 2014Q2

REPORT INFORMATION
  Report Type: Report from Study
  Country: IT (occurrence: IT)
  Receive Date: 20130725
  Receipt Date: 20140407
  Transmission Date: 20141212
  Serious: Yes (Hospitalization)
  Sender: FDA-Public Use
  Company Number: IT-ROCHE-1086416

PATIENT
  Age: 68 Year
  Sex: Male
  Weight: 70 kg

DRUGS (2)
  1. VEMURAFENIB [Suspect]
     Indication: MALIGNANT MELANOMA
     Route: 065
     Dates: start: 20120608, end: 20120615
  2. VEMURAFENIB [Suspect]
     Route: 065
     Dates: start: 20120615, end: 20120918

REACTIONS (3)
  - Pyrexia [Recovered/Resolved]
  - Lip oedema [Recovered/Resolved]
  - Oedema [Recovered/Resolved]
